FAERS Safety Report 6276263-7 (Version None)
Quarter: 2009Q3

REPORT INFORMATION
  Report Type: 
  Country: None (occurrence: None)
  Receive Date: 20090722
  Receipt Date: 20090717
  Transmission Date: 20100115
  Serious: Yes (Death)
  Sender: FDA-Public Use
  Company Number: CN-BAYER-200921560GPV

PATIENT
  Age: 15 Year
  Sex: Male

DRUGS (1)
  1. LEVITRA [Suspect]
     Indication: HEART DISEASE CONGENITAL
     Dosage: TOTAL DAILY DOSE: 5 MG  UNIT DOSE: 10 MG
     Route: 048
     Dates: start: 20090515, end: 20090522

REACTIONS (1)
  - CARDIAC FAILURE [None]
